FAERS Safety Report 5278593-4 (Version None)
Quarter: 2007Q1

REPORT INFORMATION
  Report Type: 
  Country: None (occurrence: None)
  Receive Date: 20070328
  Receipt Date: 20070327
  Transmission Date: 20070707
  Serious: Yes (Hospitalization, Other)
  Sender: FDA-Public Use
  Company Number: US-GLAXOSMITHKLINE-A0643108A

PATIENT
  Age: 9 Year
  Sex: Female
  Weight: 19.5 kg

DRUGS (9)
  1. FLOLAN [Suspect]
     Dosage: 15NGKM UNKNOWN
     Route: 042
     Dates: start: 20000718
  2. FLOVENT [Concomitant]
     Dosage: 44MCG AS REQUIRED
     Route: 055
  3. COUMADIN [Concomitant]
     Dosage: 1TAB AS DIRECTED
     Route: 048
  4. TRACLEER [Concomitant]
     Dosage: 62.5MG PER DAY
     Route: 048
  5. DIGOXIN [Concomitant]
     Dosage: .125MG IN THE MORNING
     Route: 048
  6. ALDACTONE [Concomitant]
     Dosage: 12.5MG PER DAY
     Route: 048
  7. SEREVENT [Concomitant]
     Dosage: 1PUFF AS REQUIRED
     Route: 055
  8. FUROSEMIDE [Concomitant]
     Dosage: 15MG TWICE PER DAY
  9. SINGULAIR [Concomitant]
     Dosage: 4MG AT NIGHT
     Route: 048

REACTIONS (7)
  - CATHETER RELATED COMPLICATION [None]
  - CATHETER RELATED INFECTION [None]
  - CATHETER SITE OEDEMA [None]
  - CATHETER SITE PAIN [None]
  - INFUSION SITE REACTION [None]
  - PAIN IN EXTREMITY [None]
  - PHARMACEUTICAL PRODUCT COMPLAINT [None]
